FAERS Safety Report 5771717-1 (Version None)
Quarter: 2008Q2

REPORT INFORMATION
  Report Type: 
  Country: None (occurrence: None)
  Receive Date: 20080613
  Receipt Date: 20080604
  Transmission Date: 20081010
  Serious: Yes (Life-Threatening, Other)
  Sender: FDA-Public Use
  Company Number: PR-BAXTER-2008BH005944

PATIENT
  Age: 2 Month
  Sex: Male
  Weight: 3 kg

DRUGS (1)
  1. DIANEAL [Suspect]
     Indication: PERITONEAL DIALYSIS
     Route: 033
     Dates: start: 20080604, end: 20080604

REACTIONS (5)
  - ABDOMINAL DISTENSION [None]
  - DEVICE MALFUNCTION [None]
  - HYPERTENSION [None]
  - IRRITABILITY [None]
  - TACHYCARDIA [None]
